FAERS Safety Report 8406716-4 (Version None)
Quarter: 2012Q2

REPORT INFORMATION
  Report Type: 
  Country: None (occurrence: None)
  Receive Date: 20120604
  Receipt Date: 20120522
  Transmission Date: 20120825
  Serious: Yes (Other)
  Sender: FDA-Public Use
  Company Number: AT-PFIZER INC-2012131189

PATIENT
  Age: 56 Year
  Sex: Male

DRUGS (3)
  1. CETUXIMAB [Suspect]
     Indication: COLORECTAL CANCER METASTATIC
     Dosage: 250 MG/M2 (DAY 1, 8 AND 15)
     Dates: start: 20040301, end: 20041101
  2. OXALIPLATIN [Suspect]
     Indication: COLORECTAL CANCER METASTATIC
     Dosage: UNK
     Dates: start: 20030701, end: 20031201
  3. IRINOTECAN HCL [Suspect]
     Indication: COLORECTAL CANCER METASTATIC
     Dosage: 350 MG/M2 (DAY 1)
     Dates: start: 20040301, end: 20041101

REACTIONS (7)
  - CHRONIC MYELOID LEUKAEMIA [None]
  - NEOPLASM PROGRESSION [None]
  - NEOPLASM MALIGNANT [None]
  - CHROMOSOME ANALYSIS ABNORMAL [None]
  - METASTASES TO LUNG [None]
  - BLAST CRISIS IN MYELOGENOUS LEUKAEMIA [None]
  - COLORECTAL CANCER METASTATIC [None]
